FAERS Safety Report 11061989 (Version 3)
Quarter: 2015Q2

REPORT INFORMATION
  Report Type: Spontaneous
  Country: US (occurrence: None)
  Receive Date: 20150415
  Receipt Date: 20150624
  Transmission Date: 20150821
  Serious: Yes (Other)
  Sender: FDA-Public Use
  Company Number: 1713747-2015-99938

PATIENT
  Age: 40 Year
  Sex: Female
  Weight: 72.4 kg

DRUGS (3)
  1. DELFLEX [Suspect]
     Active Substance: CALCIUM CHLORIDE\DEXTROSE MONOHYDRATE\MAGNESIUM CHLORIDE\SODIUM CHLORIDE\SODIUM LACTATE
     Indication: CHRONIC KIDNEY DISEASE
     Dosage: PERITONEAL DIALYS
     Dates: start: 201308
  2. LIBERTY CYCLER [Concomitant]
     Active Substance: DEVICE
  3. LIBERTY CYCLER SET [Concomitant]
     Active Substance: DEVICE

REACTIONS (1)
  - Peritonitis [None]

NARRATIVE: CASE EVENT DATE: 201308
